FAERS Safety Report 7386378-8 (Version None)
Quarter: 2011Q1

REPORT INFORMATION
  Report Type: 
  Country: None (occurrence: None)
  Receive Date: 20110331
  Receipt Date: 20110321
  Transmission Date: 20110831
  Serious: Yes (Other)
  Sender: FDA-Public Use
  Company Number: PHHY2010BR72859

PATIENT
  Sex: Female

DRUGS (1)
  1. TRILEPTAL [Suspect]
     Dosage: 0.5 DF, BID/ HALF TABLET IN MORNING AND HALF TABLET IN EVENING
     Route: 048

REACTIONS (6)
  - OROPHARYNGEAL PAIN [None]
  - ASTHENIA [None]
  - PHARYNGEAL MASS [None]
  - FEELING HOT [None]
  - PAIN [None]
  - DERMATITIS BULLOUS [None]
